FAERS Safety Report 10176861 (Version 1)
Quarter: 2014Q2

REPORT INFORMATION
  Report Type: Spontaneous
  Country: ES (occurrence: ES)
  Receive Date: 20140516
  Receipt Date: 20140516
  Transmission Date: 20141212
  Serious: Yes (Death, Hospitalization)
  Sender: FDA-Public Use
  Company Number: ES-BAYER-2014-068073

PATIENT
  Age: 66 Year
  Sex: Male

DRUGS (2)
  1. ACETYLSALICYLIC ACID({=100 MG) [Suspect]
     Indication: ANTIPLATELET THERAPY
     Dosage: 100 MG, DAILY
     Route: 048
  2. CLOPIDOGREL [Interacting]
     Indication: ANTIPLATELET THERAPY
     Dosage: 75 MG, DAILY

REACTIONS (2)
  - Intraventricular haemorrhage [Fatal]
  - Labelled drug-disease interaction medication error [None]
